FAERS Safety Report 17987916 (Version 5)
Quarter: 2020Q3

REPORT INFORMATION
  Report Type: Spontaneous
  Country: US (occurrence: US)
  Receive Date: 20200707
  Receipt Date: 20200807
  Transmission Date: 20201103
  Serious: Yes (Other)
  Sender: FDA-Public Use
  Company Number: US-CELGENEUS-USA-20200700420

PATIENT
  Age: 80 Year
  Sex: Female

DRUGS (1)
  1. REVLIMID [Suspect]
     Active Substance: LENALIDOMIDE
     Indication: PLASMA CELL MYELOMA
     Dosage: 10 MILLIGRAM
     Route: 048
     Dates: start: 20200316

REACTIONS (8)
  - Erythema [Unknown]
  - Neoplasm skin [Unknown]
  - Onychoclasis [Unknown]
  - Fatigue [Unknown]
  - Insomnia [Unknown]
  - Rash [Unknown]
  - Oedema peripheral [Unknown]
  - Urticaria [Unknown]

NARRATIVE: CASE EVENT DATE: 2020
